FAERS Safety Report 6467585-5 (Version None)
Quarter: 2009Q4

REPORT INFORMATION
  Report Type: 
  Country: None (occurrence: None)
  Receive Date: 20091202
  Receipt Date: 20091120
  Transmission Date: 20100525
  Serious: Yes (Death, Other)
  Sender: FDA-Public Use
  Company Number: US-PFIZER INC-2009296282

PATIENT
  Age: 37 Year
  Sex: Male

DRUGS (2)
  1. ZOLOFT [Suspect]
     Indication: ANXIETY
     Dosage: 25 MG, UNK
     Dates: start: 20030601
  2. ZOLOFT [Suspect]
     Dosage: 50 MG, UNK

REACTIONS (13)
  - ABNORMAL BEHAVIOUR [None]
  - ANXIETY [None]
  - COMPLETED SUICIDE [None]
  - DIARRHOEA [None]
  - DYSPHONIA [None]
  - FEELING ABNORMAL [None]
  - HYPERHIDROSIS [None]
  - IRRITABILITY [None]
  - NIGHT SWEATS [None]
  - RESTLESSNESS [None]
  - TEARFULNESS [None]
  - TREMOR [None]
  - WEIGHT DECREASED [None]
